FAERS Safety Report 7134553-X (Version None)
Quarter: 2010Q4

REPORT INFORMATION
  Report Type: 
  Country: None (occurrence: None)
  Receive Date: 20101130
  Receipt Date: 20101130
  Transmission Date: 20110411
  Serious: Yes (Other)
  Sender: FDA-Public Use
  Company Number: None

PATIENT
  Age: 79 Year
  Sex: Female
  Weight: 49.8957 kg

DRUGS (1)
  1. AGGRENOX [Suspect]
     Indication: CEREBROVASCULAR ACCIDENT PROPHYLAXIS
     Dosage: 1 2X DAY ORAL
     Route: 048
     Dates: start: 20100716

REACTIONS (5)
  - ASTHENIA [None]
  - CHILLS [None]
  - HEADACHE [None]
  - NAUSEA [None]
  - VOMITING [None]
